FAERS Safety Report 5577619-8 (Version None)
Quarter: 2007Q4

REPORT INFORMATION
  Report Type: 
  Country: None (occurrence: None)
  Receive Date: 20071231
  Receipt Date: 20071219
  Transmission Date: 20080405
  Serious: Yes (Hospitalization)
  Sender: FDA-Public Use
  Company Number: PHBS2007JP19584

PATIENT
  Age: 62 Year
  Sex: Male

DRUGS (3)
  1. NEORAL [Suspect]
     Indication: PSORIASIS
     Dosage: 100 MG, UNK
     Route: 048
     Dates: start: 20050426, end: 20060122
  2. ANTEBATE [Concomitant]
     Indication: PSORIASIS
     Dosage: 4 G, UNK
     Route: 061
  3. BONALFA [Concomitant]
     Indication: PSORIASIS
     Dosage: 2 G, UNK
     Route: 061

REACTIONS (1)
  - ANGINA PECTORIS [None]
